FAERS Safety Report 9264030 (Version 1)
Quarter: 2013Q2

REPORT INFORMATION
  Report Type: Spontaneous
  Country: NL (occurrence: NL)
  Receive Date: 20130430
  Receipt Date: 20130430
  Transmission Date: 20140414
  Serious: Yes (Congenital Anomaly, Other)
  Sender: FDA-Public Use
  Company Number: NL-009507513-1304NLD017254

PATIENT
  Age: 71 Year
  Sex: Male
  Weight: 75 kg

DRUGS (8)
  1. SIMVASTATIN [Suspect]
     Indication: HYPERCHOLESTEROLAEMIA
     Dosage: 40 MG, QD
     Dates: start: 20130417
  2. PHENPROCOUMON [Suspect]
     Dosage: TIMES PER
  3. VALSARTAN PLUS [Concomitant]
     Dosage: 1 DF, UNK
  4. BISOPROLOL [Concomitant]
     Dosage: 2.5 MG, QD
  5. AMLODIPINE [Concomitant]
     Dosage: 5 MG, QD
  6. METFORMIN [Concomitant]
     Dosage: 850 MG, TID
  7. GLIBENCLAMID [Concomitant]
     Dosage: 5 MG, TID
  8. TAMBOCOR [Concomitant]
     Dosage: 250 MG, UNK

REACTIONS (2)
  - Haemorrhage [Unknown]
  - Drug interaction [Unknown]
